FAERS Safety Report 25451301 (Version 1)
Quarter: 2025Q2

REPORT INFORMATION
  Report Type: Spontaneous
  Country: CN (occurrence: CN)
  Receive Date: 20250618
  Receipt Date: 20250618
  Transmission Date: 20250717
  Serious: Yes (Other)
  Sender: MYLAN
  Company Number: CN-MYLANLABS-2025M1050332

PATIENT
  Age: 45 Year
  Sex: Male

DRUGS (4)
  1. LYRICA [Suspect]
     Active Substance: PREGABALIN
     Indication: Pain
     Dosage: 75 MILLIGRAM, BID
     Dates: start: 20250516, end: 20250519
  2. LYRICA [Suspect]
     Active Substance: PREGABALIN
     Indication: Cervical radiculopathy
     Dosage: 75 MILLIGRAM, BID
     Route: 048
     Dates: start: 20250516, end: 20250519
  3. LYRICA [Suspect]
     Active Substance: PREGABALIN
     Indication: Sinus bradycardia
     Dosage: 75 MILLIGRAM, BID
     Route: 048
     Dates: start: 20250516, end: 20250519
  4. LYRICA [Suspect]
     Active Substance: PREGABALIN
     Dosage: 75 MILLIGRAM, BID
     Dates: start: 20250516, end: 20250519

REACTIONS (3)
  - Amaurosis fugax [Recovering/Resolving]
  - Nausea [Recovering/Resolving]
  - Somnolence [Recovering/Resolving]

NARRATIVE: CASE EVENT DATE: 20250518
